FAERS Safety Report 5529362-9 (Version None)
Quarter: 2007Q4

REPORT INFORMATION
  Report Type: 
  Country: None (occurrence: None)
  Receive Date: 20071129
  Receipt Date: 20071126
  Transmission Date: 20080405
  Serious: Yes (Hospitalization)
  Sender: FDA-Public Use
  Company Number: A0695705A

PATIENT
  Age: 57 Year
  Sex: Male

DRUGS (17)
  1. ADVAIR DISKUS 100/50 [Suspect]
     Indication: CHRONIC OBSTRUCTIVE PULMONARY DISEASE
     Dosage: 1PUFF TWICE PER DAY
     Route: 055
  2. COREG [Suspect]
     Dosage: 12.5MG VARIABLE DOSE
     Route: 048
  3. LIPITOR [Concomitant]
  4. PERCOCET [Concomitant]
  5. TORSEMIDE [Concomitant]
  6. COREG [Concomitant]
  7. COUMADIN [Concomitant]
  8. MUCINEX [Concomitant]
  9. CLORAZEPATE [Concomitant]
  10. MILRINONE [Concomitant]
     Route: 042
  11. AMIODARONE HCL [Concomitant]
  12. CYMBALTA [Concomitant]
  13. MIRALAX [Concomitant]
  14. SYNTHROID [Concomitant]
  15. ATROVENT [Concomitant]
  16. XOPENEX [Concomitant]
  17. UNSPECIFIED MEDICATION [Concomitant]

REACTIONS (2)
  - CARDIAC FAILURE CONGESTIVE [None]
  - OEDEMA [None]
